FAERS Safety Report 6708255-5 (Version None)
Quarter: 2010Q2

REPORT INFORMATION
  Report Type: 
  Country: None (occurrence: None)
  Receive Date: 20100503
  Receipt Date: 20090803
  Transmission Date: 20101027
  Serious: No
  Sender: FDA-Public Use
  Company Number: US-ASTRAZENECA-2009SE06687

PATIENT
  Age: 19 Year
  Sex: Male

DRUGS (3)
  1. NEXIUM [Suspect]
     Route: 065
     Dates: start: 20090624
  2. ADDERALL XR 10 [Interacting]
     Indication: ATTENTION DEFICIT/HYPERACTIVITY DISORDER
     Route: 048
     Dates: start: 20090623
  3. XYZAL [Interacting]
     Dates: start: 20090624

REACTIONS (4)
  - AGITATION [None]
  - DRUG INTERACTION [None]
  - INSOMNIA [None]
  - IRRITABILITY [None]
